FAERS Safety Report 19451764 (Version 1)
Quarter: 2021Q2

REPORT INFORMATION
  Report Type: Spontaneous
  Country: BR (occurrence: BR)
  Receive Date: 20210623
  Receipt Date: 20210623
  Transmission Date: 20210717
  Serious: Yes (Hospitalization, Other)
  Sender: FDA-Public Use
  Company Number: BR-TEVA-2021-BR-1916254

PATIENT
  Age: 48 Year
  Sex: Male

DRUGS (11)
  1. HYDROCHLOROTHIAZIDE. [Concomitant]
     Active Substance: HYDROCHLOROTHIAZIDE
  2. GLICLAZIDE [Concomitant]
     Active Substance: GLICLAZIDE
  3. INSULIN [Concomitant]
     Active Substance: INSULIN NOS
  4. NOVOCILIN [Concomitant]
  5. COPAXONE [Suspect]
     Active Substance: GLATIRAMER ACETATE
     Indication: RELAPSING-REMITTING MULTIPLE SCLEROSIS
     Route: 065
     Dates: start: 20210308, end: 202106
  6. AMITRIPTYLINE [Concomitant]
     Active Substance: AMITRIPTYLINE
  7. GLIFAXE [Concomitant]
  8. LOSARTAN. [Concomitant]
     Active Substance: LOSARTAN
  9. GLIFAGE [Concomitant]
     Active Substance: METFORMIN HYDROCHLORIDE
  10. VITAMIN D [Concomitant]
     Active Substance: VITAMIN D NOS
  11. DIPYRONE [Suspect]
     Active Substance: DIPYRONE
     Route: 065

REACTIONS (36)
  - Paraesthesia oral [Recovered/Resolved]
  - Paraesthesia [Not Recovered/Not Resolved]
  - Injection site reaction [Recovered/Resolved]
  - Feeling cold [Recovered/Resolved]
  - Heart rate increased [Recovered/Resolved]
  - Discomfort [Recovered/Resolved]
  - Injection site pain [Not Recovered/Not Resolved]
  - Urinary incontinence [Recovered/Resolved]
  - Adverse drug reaction [Recovered/Resolved]
  - Dizziness [Not Recovered/Not Resolved]
  - Emotional distress [Recovered/Resolved]
  - Swelling [Recovered/Resolved]
  - Syncope [Recovered/Resolved]
  - Fear [Not Recovered/Not Resolved]
  - Peripheral swelling [Recovered/Resolved]
  - Head discomfort [Recovered/Resolved]
  - Limb discomfort [Recovered/Resolved]
  - Adverse event [Recovered/Resolved]
  - Erythema [Recovered/Resolved]
  - Anal incontinence [Recovered/Resolved]
  - Chest discomfort [Recovered/Resolved]
  - Chills [Recovered/Resolved]
  - Trismus [Recovered/Resolved]
  - Blood pressure decreased [Recovered/Resolved]
  - Blood pressure increased [Recovered/Resolved]
  - Swelling face [Recovered/Resolved]
  - Gait disturbance [Recovered/Resolved]
  - Hypoaesthesia [Unknown]
  - Adverse reaction [Unknown]
  - Skin discolouration [Recovered/Resolved]
  - Swelling [Not Recovered/Not Resolved]
  - Suffocation feeling [Recovered/Resolved]
  - Eye swelling [Not Recovered/Not Resolved]
  - Gait inability [Not Recovered/Not Resolved]
  - Ocular hyperaemia [Recovered/Resolved]
  - Tooth injury [Recovered/Resolved]

NARRATIVE: CASE EVENT DATE: 2021
